FAERS Safety Report 23452702 (Version 1)
Quarter: 2024Q1

REPORT INFORMATION
  Report Type: Spontaneous
  Country: AU (occurrence: AU)
  Receive Date: 20240129
  Receipt Date: 20240129
  Transmission Date: 20240410
  Serious: Yes (Other)
  Sender: FDA-Public Use
  Company Number: AU-TAKEDA-2024TUS007279

PATIENT
  Age: 59 Year
  Sex: Male

DRUGS (7)
  1. HUMAN IMMUNOGLOBULIN G [Suspect]
     Active Substance: HUMAN IMMUNOGLOBULIN G
     Indication: Graft versus host disease
     Dosage: UNK
     Route: 042
  2. METHOTREXATE [Suspect]
     Active Substance: METHOTREXATE
     Indication: Graft versus host disease
     Dosage: UNK
     Route: 065
  3. CYCLOSPORINE [Suspect]
     Active Substance: CYCLOSPORINE
     Indication: Graft versus host disease
     Dosage: UNK
     Route: 065
  4. MYCOPHENOLATE MOFETIL [Suspect]
     Active Substance: MYCOPHENOLATE MOFETIL
     Indication: Graft versus host disease
     Dosage: UNK
     Route: 065
  5. PREDNISOLONE [Suspect]
     Active Substance: PREDNISOLONE
     Indication: Graft versus host disease
     Dosage: UNK
     Route: 065
  6. TACROLIMUS [Suspect]
     Active Substance: TACROLIMUS
     Indication: Graft versus host disease
     Dosage: UNK
     Route: 065
  7. THALIDOMIDE [Suspect]
     Active Substance: THALIDOMIDE
     Indication: Graft versus host disease
     Dosage: UNK
     Route: 065

REACTIONS (2)
  - Drug ineffective [Unknown]
  - Off label use [Unknown]
